FAERS Safety Report 14843205 (Version 1)
Quarter: 2018Q2

REPORT INFORMATION
  Report Type: Spontaneous
  Country: US (occurrence: US)
  Receive Date: 20180503
  Receipt Date: 20180503
  Transmission Date: 20180711
  Serious: Yes (Other)
  Sender: FDA-Public Use
  Company Number: US-PFIZER INC-2018179895

PATIENT
  Sex: Female

DRUGS (3)
  1. ORENCIA [Concomitant]
     Active Substance: ABATACEPT
     Dosage: UNK
     Dates: start: 201803
  2. HUMIRA [Suspect]
     Active Substance: ADALIMUMAB
     Dosage: UNK
     Route: 058
  3. XELJANZ XR [Suspect]
     Active Substance: TOFACITINIB CITRATE
     Dosage: UNK

REACTIONS (3)
  - Multiple sclerosis [Unknown]
  - Condition aggravated [Unknown]
  - Drug ineffective [Unknown]
